FAERS Safety Report 7971353 (Version 5)
Quarter: 2016Q1

REPORT INFORMATION
  Report Type: Spontaneous
  Country: US (occurrence: US)
  Receive Date: 20110602
  Receipt Date: 20160315
  Transmission Date: 20160526
  Serious: Yes (Hospitalization, Disabling, Other)
  Sender: FDA-Public Use
  Company Number: US-ASTRAZENECA-2011SE32199

PATIENT
  Age: 64 Year
  Sex: Male
  Weight: 70.8 kg

DRUGS (15)
  1. DIAZEPAM. [Concomitant]
     Active Substance: DIAZEPAM
     Indication: NERVOUS SYSTEM DISORDER
     Route: 048
  2. SYMBICORT [Suspect]
     Active Substance: BUDESONIDE\FORMOTEROL FUMARATE DIHYDRATE
     Indication: EMPHYSEMA
     Dosage: 160 MCG, TWO PUFFS, TWICE DAILY
     Route: 055
  3. SYMBICORT [Suspect]
     Active Substance: BUDESONIDE\FORMOTEROL FUMARATE DIHYDRATE
     Indication: ASTHMA
     Dosage: 160 MCG, ONE PUFFS, TWICE DAILY
     Route: 055
  4. MOBIC [Concomitant]
     Active Substance: MELOXICAM
  5. METOPROLOL TARTRATE. [Concomitant]
     Active Substance: METOPROLOL TARTRATE
     Route: 048
     Dates: start: 201501
  6. ALBUTEROL. [Concomitant]
     Active Substance: ALBUTEROL
     Indication: CHRONIC OBSTRUCTIVE PULMONARY DISEASE
     Dosage: AS REQUIRED
     Route: 055
     Dates: start: 201501
  7. NEXIUM [Suspect]
     Active Substance: ESOMEPRAZOLE MAGNESIUM
     Indication: GASTROOESOPHAGEAL REFLUX DISEASE
     Route: 048
  8. CENTRUM SILVER [Concomitant]
     Active Substance: MINERALS\VITAMINS
     Route: 048
  9. BAYER ASPIRIN [Concomitant]
     Active Substance: ASPIRIN
     Indication: CARDIAC DISORDER
     Route: 048
  10. SYMBICORT [Suspect]
     Active Substance: BUDESONIDE\FORMOTEROL FUMARATE DIHYDRATE
     Indication: CHRONIC OBSTRUCTIVE PULMONARY DISEASE
     Dosage: 160 MCG, ONE PUFFS, TWICE DAILY
     Route: 055
  11. NEXIUM [Suspect]
     Active Substance: ESOMEPRAZOLE MAGNESIUM
     Route: 048
  12. SYMBICORT [Suspect]
     Active Substance: BUDESONIDE\FORMOTEROL FUMARATE DIHYDRATE
     Indication: ASTHMA
     Dosage: 160 MCG, TWO PUFFS, TWICE DAILY
     Route: 055
  13. ALBUTEROL. [Concomitant]
     Active Substance: ALBUTEROL
     Indication: DYSPNOEA
     Dosage: AS REQUIRED
     Route: 055
     Dates: start: 201501
  14. SYMBICORT [Suspect]
     Active Substance: BUDESONIDE\FORMOTEROL FUMARATE DIHYDRATE
     Indication: CHRONIC OBSTRUCTIVE PULMONARY DISEASE
     Dosage: 160 MCG, TWO PUFFS, TWICE DAILY
     Route: 055
  15. SYMBICORT [Suspect]
     Active Substance: BUDESONIDE\FORMOTEROL FUMARATE DIHYDRATE
     Indication: EMPHYSEMA
     Dosage: 160 MCG, ONE PUFFS, TWICE DAILY
     Route: 055

REACTIONS (25)
  - Dyspnoea [Unknown]
  - Localised infection [Unknown]
  - Amnesia [Unknown]
  - Liver disorder [Unknown]
  - Chronic obstructive pulmonary disease [Unknown]
  - Rhinorrhoea [Unknown]
  - Dizziness [Unknown]
  - Drug dose omission [Unknown]
  - Weight decreased [Unknown]
  - Off label use [Unknown]
  - Drug ineffective [Unknown]
  - Asthma [Unknown]
  - Head discomfort [Not Recovered/Not Resolved]
  - Myocardial infarction [Unknown]
  - Gait disturbance [Unknown]
  - Emphysema [Unknown]
  - Wheezing [Unknown]
  - Tinnitus [Not Recovered/Not Resolved]
  - Pneumonia [Unknown]
  - Bronchitis [Unknown]
  - Confusional state [Unknown]
  - Suicidal ideation [Unknown]
  - Decreased appetite [Unknown]
  - Gait disturbance [Unknown]
  - Cough [Unknown]

NARRATIVE: CASE EVENT DATE: 2010
